FAERS Safety Report 4616841-1 (Version None)
Quarter: 2005Q1

REPORT INFORMATION
  Report Type: 
  Country: None (occurrence: None)
  Receive Date: 20050321
  Receipt Date: 20050125
  Transmission Date: 20050727
  Serious: Yes (Hospitalization)
  Sender: FDA-Public Use
  Company Number: 8860

PATIENT
  Age: 24 Year
  Sex: Male

DRUGS (8)
  1. MITOXANTRONE [Suspect]
     Indication: ACUTE LYMPHOCYTIC LEUKAEMIA
     Dates: start: 20020210
  2. CYTARABINE [Suspect]
     Dates: start: 20020208, end: 20020212
  3. METHOTREXATE [Suspect]
     Indication: ACUTE LYMPHOCYTIC LEUKAEMIA
     Dosage: 126 MG
     Dates: start: 20020210, end: 20020212
  4. METRONIDAZOLE [Concomitant]
  5. FLUCONAZOLE [Concomitant]
  6. DRONABINOL [Concomitant]
  7. CEFTAZIDIME [Concomitant]
  8. VANCOMYCIN [Concomitant]

REACTIONS (2)
  - ANOREXIA [None]
  - STOMATITIS [None]
